FAERS Safety Report 5874741-3 (Version None)
Quarter: 2008Q3

REPORT INFORMATION
  Report Type: 
  Country: None (occurrence: None)
  Receive Date: 20080903
  Receipt Date: 20080819
  Transmission Date: 20090109
  Serious: Yes (Other)
  Sender: FDA-Public Use
  Company Number: 20079

PATIENT
  Age: 74 Year
  Sex: Female

DRUGS (9)
  1. METHOTREXATE [Suspect]
     Indication: RHEUMATOID ARTHRITIS
     Dosage: 10 MG WEEKLY
     Dates: start: 20080728
  2. METHOTREXATE [Suspect]
     Indication: RHEUMATOID ARTHRITIS
     Dosage: 10 MG WEEKLY
     Dates: end: 20080701
  3. METHOTREXATE [Suspect]
     Indication: RHEUMATOID ARTHRITIS
     Dosage: 5 MG WEEKLY
     Dates: end: 20080727
  4. METHOTREXATE [Suspect]
     Indication: RHEUMATOID ARTHRITIS
     Dosage: 7.5 MG WEEKLY
  5. FOLIC ACID [Concomitant]
  6. HYDROXYCHLOROQUINE [Concomitant]
  7. OMEPRAZOLE [Concomitant]
  8. SULFASALAZINE [Concomitant]
  9. ENBREL [Suspect]
     Dosage: 50 MG WEEKLY SC
     Route: 058
     Dates: start: 20071201

REACTIONS (4)
  - INJECTION SITE IRRITATION [None]
  - INJECTION SITE REACTION [None]
  - NAUSEA [None]
  - RASH GENERALISED [None]
